FAERS Safety Report 21466995 (Version 1)
Quarter: 2022Q4

REPORT INFORMATION
  Report Type: Spontaneous
  Country: GB (occurrence: GB)
  Receive Date: 20221017
  Receipt Date: 20221017
  Transmission Date: 20230112
  Serious: Yes (Other)
  Sender: FDA-Public Use
  Company Number: GB-MHRA-MED-202210122151481790-FLQMZ

PATIENT
  Age: 23 Year
  Sex: Male
  Weight: 80 kg

DRUGS (1)
  1. ESCITALOPRAM [Suspect]
     Active Substance: ESCITALOPRAM OXALATE
     Indication: Product used for unknown indication
     Dosage: 10 MILLIGRAM, QD (10MG A DAY)
     Route: 065

REACTIONS (1)
  - Hallucination, auditory [Unknown]

NARRATIVE: CASE EVENT DATE: 20221012
